FAERS Safety Report 6433990-6 (Version None)
Quarter: 2009Q4

REPORT INFORMATION
  Report Type: 
  Country: None (occurrence: None)
  Receive Date: 20091110
  Receipt Date: 20091027
  Transmission Date: 20100525
  Serious: Yes (Hospitalization, Disabling, Other)
  Sender: FDA-Public Use
  Company Number: PHEH2007US07844

PATIENT
  Sex: Female
  Weight: 64.853 kg

DRUGS (9)
  1. ZELNORM [Suspect]
  2. LUNESTA [Concomitant]
  3. IMDUR [Concomitant]
  4. CARDIZEM CD [Concomitant]
  5. NORVASC [Concomitant]
  6. CRESTOR [Concomitant]
  7. ALTACE [Concomitant]
  8. TOPROL-XL [Concomitant]
  9. ASPIRIN [Concomitant]

REACTIONS (19)
  - ACUTE MYOCARDIAL INFARCTION [None]
  - AMNESIA [None]
  - ANGINA PECTORIS [None]
  - ANGIOPLASTY [None]
  - ANHEDONIA [None]
  - ANXIETY [None]
  - CARDIAC DISORDER [None]
  - CATHETERISATION CARDIAC [None]
  - CHEST PAIN [None]
  - CORONARY ARTERY BYPASS [None]
  - CORONARY ARTERY DISEASE [None]
  - DEFORMITY [None]
  - DISABILITY [None]
  - EMOTIONAL DISTRESS [None]
  - INJURY [None]
  - LIFE EXPECTANCY SHORTENED [None]
  - NAUSEA [None]
  - PAIN [None]
  - VENTRICULAR EXTRASYSTOLES [None]
